FAERS Safety Report 25402628 (Version 2)
Quarter: 2025Q2

REPORT INFORMATION
  Report Type: Spontaneous
  Country: NZ (occurrence: NZ)
  Receive Date: 20250605
  Receipt Date: 20250611
  Transmission Date: 20250716
  Serious: Yes (Death, Other)
  Sender: MYLAN
  Company Number: NZ-MYLANLABS-2025M1046739

PATIENT
  Age: 69 Year
  Sex: Male

DRUGS (9)
  1. CLOZARIL [Suspect]
     Active Substance: CLOZAPINE
     Indication: Schizophrenia
     Dates: start: 20240625, end: 20250529
  2. ENTACAPONE [Concomitant]
     Active Substance: ENTACAPONE
  3. LACTULOSE [Concomitant]
     Active Substance: LACTULOSE
  4. SINEMET [Concomitant]
     Active Substance: CARBIDOPA\LEVODOPA
  5. CITALOPRAM [Concomitant]
     Active Substance: CITALOPRAM
  6. DONEPEZIL [Concomitant]
     Active Substance: DONEPEZIL
  7. MELATONIN [Concomitant]
     Active Substance: MELATONIN
  8. CLONAZEPAM [Concomitant]
     Active Substance: CLONAZEPAM
  9. CHOLECALCIFEROL [Concomitant]
     Active Substance: CHOLECALCIFEROL

REACTIONS (2)
  - Death [Fatal]
  - Palliative care [Unknown]

NARRATIVE: CASE EVENT DATE: 20250604
